FAERS Safety Report 24252159 (Version 1)
Quarter: 2024Q3

REPORT INFORMATION
  Report Type: Spontaneous
  Country: CA (occurrence: CA)
  Receive Date: 20240827
  Receipt Date: 20240827
  Transmission Date: 20241016
  Serious: Yes (Other)
  Sender: BRISTOL MYERS SQUIBB
  Company Number: CA-BRISTOL-MYERS SQUIBB COMPANY-2024-132686

PATIENT

DRUGS (2)
  1. APIXABAN [Interacting]
     Active Substance: APIXABAN
     Indication: Tumour thrombosis
     Route: 048
  2. DASATINIB [Interacting]
     Active Substance: DASATINIB
     Indication: Neoplasm malignant

REACTIONS (2)
  - Drug interaction [Unknown]
  - Thrombosis [Unknown]
